FAERS Safety Report 8554419-8 (Version None)
Quarter: 2012Q3

REPORT INFORMATION
  Report Type: 
  Country: None (occurrence: None)
  Receive Date: 20120731
  Receipt Date: 20120716
  Transmission Date: 20120928
  Serious: No
  Sender: FDA-Public Use
  Company Number: US-ASTRAZENECA-2012SE20842

PATIENT
  Age: 80 Year
  Sex: Male
  Weight: 73.9 kg

DRUGS (10)
  1. PRILOSEC [Suspect]
     Dosage: 20
     Route: 048
  2. ANTI ANXIETY DRUG [Concomitant]
  3. CITALOPRAM HYDROBROMIDE [Concomitant]
     Dosage: 20
  4. METFORMIN HYDROCHLORIDE [Concomitant]
     Dosage: 500
  5. VICODIN [Concomitant]
  6. TAMSULOSIN HCL [Concomitant]
     Dosage: 0.4
  7. BRILINTA [Suspect]
     Indication: ACUTE CORONARY SYNDROME
     Route: 048
     Dates: start: 20120126, end: 20120201
  8. PRILOSEC OTC [Suspect]
     Route: 048
  9. PRILOSEC [Suspect]
     Route: 048
  10. ASPIRIN [Concomitant]
     Dosage: 325

REACTIONS (3)
  - SUPRAVENTRICULAR EXTRASYSTOLES [None]
  - DYSPNOEA [None]
  - BLOOD PRESSURE INCREASED [None]
